FAERS Safety Report 6074793-4 (Version None)
Quarter: 2009Q1

REPORT INFORMATION
  Report Type: 
  Country: None (occurrence: None)
  Receive Date: 20090212
  Receipt Date: 20090205
  Transmission Date: 20090719
  Serious: Yes (Other)
  Sender: FDA-Public Use
  Company Number: FR-BAXTER-2008BH013080

PATIENT
  Age: 53 Year
  Sex: Female

DRUGS (6)
  1. EXTRANEAL [Suspect]
     Indication: PERITONEAL DIALYSIS
     Route: 033
     Dates: start: 20030623, end: 20080530
  2. GAMBROSOL [Suspect]
     Indication: PERITONEAL DIALYSIS
     Route: 033
     Dates: start: 20030623, end: 20080530
  3. EPOGEN [Concomitant]
  4. PANTOPRAZOLE [Concomitant]
  5. FUROSEMIDE [Concomitant]
  6. IRON SUCROSE [Concomitant]

REACTIONS (1)
  - PERITONITIS SCLEROSING [None]
